FAERS Safety Report 22125062 (Version 2)
Quarter: 2023Q2

REPORT INFORMATION
  Report Type: Spontaneous
  Country: US (occurrence: US)
  Receive Date: 20230322
  Receipt Date: 20230411
  Transmission Date: 20230722
  Serious: Yes (Other)
  Sender: FDA-Public Use
  Company Number: US-ORGANON-O2303USA001725

PATIENT
  Age: 30 Year
  Sex: Female
  Weight: 85.714 kg

DRUGS (1)
  1. NEXPLANON [Suspect]
     Active Substance: ETONOGESTREL
     Dosage: 1 IMPLANT OF 68 MG IN NON-DOMINANT LEFT UPPER ARM, ONE EVERY THREE YEARS
     Route: 059
     Dates: start: 20221215, end: 20230315

REACTIONS (5)
  - Device expulsion [Recovered/Resolved]
  - Implant site infection [Recovered/Resolved]
  - Implant site infection [Recovered/Resolved]
  - Implant site infection [Recovered/Resolved]
  - Device placement issue [Recovered/Resolved]

NARRATIVE: CASE EVENT DATE: 20221215
